FAERS Safety Report 5441126-3 (Version None)
Quarter: 2007Q3

REPORT INFORMATION
  Report Type: 
  Country: None (occurrence: None)
  Receive Date: 20070831
  Receipt Date: 20070822
  Transmission Date: 20080115
  Serious: Yes (Other)
  Sender: FDA-Public Use
  Company Number: US-PFIZER INC-2007067047

PATIENT
  Sex: Female
  Weight: 90.7 kg

DRUGS (8)
  1. CHANTIX [Suspect]
     Indication: SMOKING CESSATION THERAPY
     Dates: start: 20070701, end: 20070801
  2. MEDROL [Suspect]
  3. PAXIL [Concomitant]
  4. LISINOPRIL [Concomitant]
  5. ZANTAC 150 [Concomitant]
  6. GLUCOTROL XL [Concomitant]
  7. ACTOS [Concomitant]
  8. MELOXICAM [Concomitant]

REACTIONS (6)
  - DIARRHOEA [None]
  - INSOMNIA [None]
  - IRRITABILITY [None]
  - NAUSEA [None]
  - RASH PRURITIC [None]
  - STOMACH DISCOMFORT [None]
